FAERS Safety Report 20873739 (Version 1)
Quarter: 2022Q2

REPORT INFORMATION
  Report Type: Spontaneous
  Country: US (occurrence: US)
  Receive Date: 20220525
  Receipt Date: 20220525
  Transmission Date: 20220721
  Serious: No
  Sender: FDA-Public Use
  Company Number: US-PFIZER INC-202200354677

PATIENT
  Age: 73 Year
  Sex: Male
  Weight: 137.44 kg

DRUGS (1)
  1. VYNDAMAX [Suspect]
     Active Substance: TAFAMIDIS
     Dosage: 61 MG, 1X/DAY (CAPSULE BY MOUTH, ONCE DAILY)
     Route: 048
     Dates: start: 2020

REACTIONS (1)
  - Hypoacusis [Unknown]
